FAERS Safety Report 8493051-1 (Version None)
Quarter: 2012Q2

REPORT INFORMATION
  Report Type: 
  Country: None (occurrence: None)
  Receive Date: 20120629
  Receipt Date: 20120629
  Transmission Date: 20120825
  Serious: Yes (Hospitalization)
  Sender: FDA-Public Use
  Company Number: None

PATIENT
  Sex: Male
  Weight: 98.1 kg

DRUGS (1)
  1. CISPLATIN [Suspect]
     Dosage: ACCELERAGED IMRT, 70 GY FOR 6 WEEKS + HIGH DOSE DDP (100MG/M2) DAYS 1 + DAY 22

REACTIONS (3)
  - OROPHARYNGEAL PAIN [None]
  - DYSPHAGIA [None]
  - CHOKING SENSATION [None]
